FAERS Safety Report 11987111 (Version 1)
Quarter: 2016Q1

REPORT INFORMATION
  Report Type: Spontaneous
  Country: US (occurrence: None)
  Receive Date: 20160201
  Receipt Date: 20160201
  Transmission Date: 20160526
  Serious: No
  Sender: FDA-Public Use
  Company Number: None

PATIENT

DRUGS (1)
  1. GENERIC MEROPENEM MEROPENEM [Suspect]
     Active Substance: MEROPENEM

REACTIONS (2)
  - Wrong patient received medication [None]
  - Incorrect dose administered [None]
